FAERS Safety Report 9658476 (Version 1)
Quarter: 2013Q4

REPORT INFORMATION
  Report Type: Spontaneous
  Country: US (occurrence: US)
  Receive Date: 20131030
  Receipt Date: 20131030
  Transmission Date: 20140711
  Serious: No
  Sender: FDA-Public Use
  Company Number: US-PURDUE-USA-2012-0084984

PATIENT
  Sex: Male

DRUGS (3)
  1. OXYCONTIN (NDA 22-272) [Suspect]
     Indication: PRODUCT USED FOR UNKNOWN INDICATION
     Dosage: 20 MG, Q12H
  2. OXYCONTIN (NDA 22-272) [Suspect]
     Dosage: 30 MG, Q12H
  3. PERCOCET                           /00446701/ [Concomitant]
     Indication: ANALGESIC THERAPY
     Dosage: UNK, PRN

REACTIONS (1)
  - Inadequate analgesia [Unknown]
